FAERS Safety Report 23667902 (Version 2)
Quarter: 2025Q3

REPORT INFORMATION
  Report Type: Report from Study
  Country: EG (occurrence: EG)
  Receive Date: 20240325
  Receipt Date: 20250820
  Transmission Date: 20251021
  Serious: No
  Sender: SANDOZ
  Company Number: EG-SANDOZ-SDZ2023EG025050

PATIENT
  Age: 9 Year
  Sex: Male
  Weight: 26 kg

DRUGS (2)
  1. OMNITROPE [Suspect]
     Active Substance: SOMATROPIN
     Indication: Growth hormone deficiency
     Route: 058
     Dates: start: 20221226, end: 20230730
  2. OMNITROPE [Suspect]
     Active Substance: SOMATROPIN
     Route: 058
     Dates: start: 20230407, end: 20230901

REACTIONS (3)
  - Medication error [Unknown]
  - Product dose omission issue [Unknown]
  - Product substitution issue [Unknown]

NARRATIVE: CASE EVENT DATE: 20230901
